FAERS Safety Report 23535574 (Version 1)
Quarter: 2024Q1

REPORT INFORMATION
  Report Type: Spontaneous
  Country: US (occurrence: None)
  Receive Date: 20240218
  Receipt Date: 20240218
  Transmission Date: 20240409
  Serious: No
  Sender: FDA-Public Use
  Company Number: 2024A033773

PATIENT
  Sex: Female

DRUGS (1)
  1. LYNPARZA [Suspect]
     Active Substance: OLAPARIB
     Dosage: UNKNOWN
     Route: 048

REACTIONS (21)
  - Headache [Unknown]
  - Balance disorder [Unknown]
  - Cognitive disorder [Unknown]
  - Dry skin [Unknown]
  - Loss of personal independence in daily activities [Unknown]
  - Throat irritation [Unknown]
  - Decreased appetite [Unknown]
  - Bladder irritation [Unknown]
  - Pain [Unknown]
  - Gastritis [Unknown]
  - Ocular discomfort [Unknown]
  - Myalgia [Unknown]
  - Arthralgia [Unknown]
  - Feeling abnormal [Unknown]
  - Sleep deficit [Unknown]
  - Apathy [Unknown]
  - Taste disorder [Unknown]
  - Dissociation [Unknown]
  - Joint stiffness [Unknown]
  - Muscle tightness [Unknown]
  - Ill-defined disorder [Unknown]
